FAERS Safety Report 25895107 (Version 1)
Quarter: 2025Q4

REPORT INFORMATION
  Report Type: Spontaneous
  Country: EU (occurrence: EU)
  Receive Date: 20251008
  Receipt Date: 20251008
  Transmission Date: 20260117
  Serious: Yes (Hospitalization, Other)
  Sender: HIKMA
  Company Number: None

PATIENT
  Age: 76 Year
  Sex: Male
  Weight: 96 kg

DRUGS (9)
  1. ATRACURIUM [Suspect]
     Active Substance: ATRACURIUM
     Indication: Anaesthesia
     Dosage: 50 MILLIGRAM
     Route: 042
     Dates: start: 20250827, end: 20250827
  2. DEXAMETHASONE [Suspect]
     Active Substance: DEXAMETHASONE
     Indication: Anaesthesia
     Dosage: 8 MILLIGRAM
     Route: 042
     Dates: start: 20250827, end: 20250827
  3. KETOPROFEN [Suspect]
     Active Substance: KETOPROFEN
     Indication: Anaesthesia
     Dosage: 100 MILLIGRAM
     Route: 042
     Dates: start: 20250827, end: 20250827
  4. LIPIODOL [Suspect]
     Active Substance: ETHIODIZED OIL
     Indication: Portal vein embolisation
     Dosage: 15 MILLILITER
     Route: 042
     Dates: start: 20250827, end: 20250827
  5. ACETAMINOPHEN [Suspect]
     Active Substance: ACETAMINOPHEN
     Indication: Anaesthesia
     Dosage: 1000 MILLIGRAM
     Route: 042
     Dates: start: 20250827, end: 20250827
  6. PROPOFOL [Suspect]
     Active Substance: PROPOFOL
     Indication: Anaesthesia
     Dosage: 200 MILLIGRAM
     Route: 042
     Dates: start: 20250827, end: 20250827
  7. SUFENTANIL CITRATE [Suspect]
     Active Substance: SUFENTANIL CITRATE
     Indication: Anaesthesia
     Dosage: 20 MICROGRAM
     Route: 042
     Dates: start: 20250827, end: 20250827
  8. TRAMADOL HYDROCHLORIDE [Suspect]
     Active Substance: TRAMADOL HYDROCHLORIDE
     Indication: Anaesthesia
     Dosage: 100 MILLIGRAM
     Route: 042
     Dates: start: 20250827, end: 20250827
  9. VISIPAQUE [Suspect]
     Active Substance: IODIXANOL
     Indication: Portal vein embolisation
     Dosage: 150 MILLILITER, SINGLE
     Route: 042
     Dates: start: 20250827, end: 20250827

REACTIONS (1)
  - Drug reaction with eosinophilia and systemic symptoms [Recovered/Resolved]

NARRATIVE: CASE EVENT DATE: 20250903
